FAERS Safety Report 8585258-X (Version None)
Quarter: 2012Q3

REPORT INFORMATION
  Report Type: 
  Country: None (occurrence: None)
  Receive Date: 20120810
  Receipt Date: 20120807
  Transmission Date: 20120928
  Serious: Yes (Death)
  Sender: FDA-Public Use
  Company Number: PHEH2012US015595

PATIENT
  Sex: Male
  Weight: 74.62 kg

DRUGS (5)
  1. MELOXICAM [Concomitant]
     Dosage: UNK UKN, QD
     Route: 048
  2. WARFARIN SODIUM [Concomitant]
     Dosage: 2.5 AND 5 MG ALT QOD
  3. METOPROLOL TARTRATE [Concomitant]
     Dosage: UNK UKN, QD
     Route: 048
  4. PRAVASTATIN [Concomitant]
     Dosage: UNK UKN, QD
     Route: 048
  5. RECLAST [Suspect]
     Indication: OSTEOPOROSIS
     Dosage: UNK UKN, ONCE YEALY
     Route: 042
     Dates: start: 20110930

REACTIONS (1)
  - ACUTE MYOCARDIAL INFARCTION [None]
